FAERS Safety Report 5800127-3 (Version None)
Quarter: 2008Q3

REPORT INFORMATION
  Report Type: 
  Country: None (occurrence: None)
  Receive Date: 20080701
  Receipt Date: 20080616
  Transmission Date: 20090109
  Serious: Yes (Hospitalization, Other)
  Sender: FDA-Public Use
  Company Number: 2008AL007079

PATIENT
  Age: 30 Year
  Sex: Female
  Weight: 90.7194 kg

DRUGS (1)
  1. DIGOXIN          TABLETS       (AMIDE) [Suspect]
     Indication: SUPRAVENTRICULAR TACHYCARDIA
     Dosage: 0.25MG, DAILY PO
     Route: 048
     Dates: start: 20080201, end: 20080401

REACTIONS (2)
  - HEART RATE IRREGULAR [None]
  - INFLUENZA LIKE ILLNESS [None]
